FAERS Safety Report 15616729 (Version 1)
Quarter: 2018Q4

REPORT INFORMATION
  Report Type: Spontaneous
  Country: US (occurrence: US)
  Receive Date: 20181114
  Receipt Date: 20181114
  Transmission Date: 20190205
  Serious: Yes (Other)
  Sender: FDA-Public Use
  Company Number: US-ABBVIE-18S-163-2548247-00

PATIENT
  Sex: Female

DRUGS (1)
  1. LUPRON DEPOT [Suspect]
     Active Substance: LEUPROLIDE ACETATE
     Indication: ENDOMETRIOSIS
     Route: 065

REACTIONS (10)
  - Weight increased [Unknown]
  - Cyst [Unknown]
  - Hot flush [Unknown]
  - Endometriosis [Recovered/Resolved]
  - Hirsutism [Unknown]
  - Abdominal adhesions [Unknown]
  - Libido decreased [Unknown]
  - Cystitis [Unknown]
  - Urinary tract adhesions [Unknown]
  - Feeling abnormal [Unknown]
